FAERS Safety Report 20855547 (Version 2)
Quarter: 2022Q2

REPORT INFORMATION
  Report Type: Spontaneous
  Country: ES (occurrence: ES)
  Receive Date: 20220520
  Receipt Date: 20220606
  Transmission Date: 20220721
  Serious: Yes (Hospitalization, Other)
  Sender: FDA-Public Use
  Company Number: ES-ELI_LILLY_AND_COMPANY-ES202205005306

PATIENT
  Age: 55 Year
  Sex: Male

DRUGS (1)
  1. OLUMIANT [Suspect]
     Active Substance: BARICITINIB
     Indication: Dermatitis atopic
     Dosage: 4 MG, DAILY
     Route: 065
     Dates: start: 20220127, end: 20220507

REACTIONS (6)
  - Acute myocardial infarction [Unknown]
  - Coronary artery occlusion [Unknown]
  - Acute coronary syndrome [Unknown]
  - Arteriosclerosis coronary artery [Unknown]
  - Left ventricular dysfunction [Unknown]
  - Haematuria [Recovered/Resolved]

NARRATIVE: CASE EVENT DATE: 20220507
